FAERS Safety Report 22399707 (Version 1)
Quarter: 2023Q2

REPORT INFORMATION
  Report Type: Spontaneous
  Country: SE (occurrence: SE)
  Receive Date: 20230602
  Receipt Date: 20230602
  Transmission Date: 20230721
  Serious: Yes (Other)
  Sender: FDA-Public Use
  Company Number: SE-009507513-2305SWE009460

PATIENT
  Age: 71 Year
  Sex: Female

DRUGS (5)
  1. JANUVIA [Suspect]
     Active Substance: SITAGLIPTIN PHOSPHATE
     Indication: Glucose tolerance impaired
     Dosage: UNK
     Route: 048
  2. LEVOTHYROXINE SODIUM [Concomitant]
     Active Substance: LEVOTHYROXINE SODIUM
  3. LOSARSTAD [Concomitant]
  4. ASPIRIN [Concomitant]
     Active Substance: ASPIRIN
  5. MAGNESIUM [Concomitant]
     Active Substance: MAGNESIUM
     Indication: Muscle spasms

REACTIONS (2)
  - Type 2 diabetes mellitus [Unknown]
  - Product use in unapproved indication [Unknown]
